FAERS Safety Report 5238072-7 (Version None)
Quarter: 2007Q1

REPORT INFORMATION
  Report Type: 
  Country: None (occurrence: None)
  Receive Date: 20070209
  Receipt Date: 20070209
  Transmission Date: 20070707
  Serious: Yes (Other)
  Sender: FDA-Public Use
  Company Number: None

PATIENT
  Sex: Male
  Weight: 85 kg

DRUGS (6)
  1. RISPERIDONE [Suspect]
     Indication: SCHIZOPHRENIA
     Dosage: 3MG BID PO
     Route: 048
     Dates: start: 20061012, end: 20061014
  2. PERPHENAZINE [Suspect]
     Indication: SCHIZOPHRENIA
     Dosage: 16MG QHS PO
     Route: 048
     Dates: start: 20061012, end: 20061014
  3. DIVALPROEX SODIUM EXTENDED RELEASE [Concomitant]
  4. VISTARIL [Concomitant]
  5. RISPERDAL [Concomitant]
  6. . [Concomitant]

REACTIONS (8)
  - BALANCE DISORDER [None]
  - DYSPNOEA [None]
  - ELECTROCARDIOGRAM CHANGE [None]
  - ELECTROCARDIOGRAM T WAVE ABNORMAL [None]
  - HYPERHIDROSIS [None]
  - ORTHOSTATIC HYPOTENSION [None]
  - PAIN [None]
  - SINUS TACHYCARDIA [None]
